FAERS Safety Report 22359155 (Version 1)
Quarter: 2023Q2

REPORT INFORMATION
  Report Type: Spontaneous
  Country: US (occurrence: US)
  Receive Date: 20230524
  Receipt Date: 20230524
  Transmission Date: 20230721
  Serious: Yes (Other)
  Sender: FDA-Public Use
  Company Number: US-BRISTOL-MYERS SQUIBB COMPANY-2023-070234

PATIENT
  Age: 62 Year
  Sex: Male

DRUGS (1)
  1. REVLIMID [Suspect]
     Active Substance: LENALIDOMIDE
     Indication: Plasma cell myeloma
     Dosage: TAKE 1 CAPSULE BY  MOUTH DAILY ON  DAYS 1-21 FOLLOWED  BY 7 DAYS OFF
     Route: 048

REACTIONS (7)
  - Pain [Recovering/Resolving]
  - Fatigue [Unknown]
  - Somnolence [Unknown]
  - Dyspnoea [Unknown]
  - Neuropathy peripheral [Unknown]
  - Prostate cancer [Unknown]
  - Diarrhoea [Unknown]
